FAERS Safety Report 5706018-0 (Version None)
Quarter: 2008Q2

REPORT INFORMATION
  Report Type: 
  Country: None (occurrence: None)
  Receive Date: 20080415
  Receipt Date: 20080407
  Transmission Date: 20081010
  Serious: Yes (Other)
  Sender: FDA-Public Use
  Company Number: PHBS2008FR03948

PATIENT
  Age: 23 Year
  Sex: Female

DRUGS (3)
  1. IMATINIB [Suspect]
     Indication: DERMATOFIBROSARCOMA
     Dosage: 800 MG/D
     Route: 065
  2. IMATINIB [Suspect]
     Dosage: 600 MG/D
     Route: 065
  3. IMATINIB [Suspect]
     Dosage: 400 MG/D
     Route: 065

REACTIONS (3)
  - BLOOD CREATINE PHOSPHOKINASE INCREASED [None]
  - MYOSITIS [None]
  - NAUSEA [None]
